FAERS Safety Report 9465247 (Version 3)
Quarter: 2013Q3

REPORT INFORMATION
  Report Type: Spontaneous
  Country: FR (occurrence: FR)
  Receive Date: 20130819
  Receipt Date: 20130904
  Transmission Date: 20140515
  Serious: Yes (Life-Threatening)
  Sender: FDA-Public Use
  Company Number: FR-PFIZER INC-2013234962

PATIENT
  Age: 66 Year
  Sex: Male

DRUGS (12)
  1. ZAVEDOS [Suspect]
     Indication: ACUTE MYELOID LEUKAEMIA
     Dosage: 18 MG DAY 1 TO DAY 5
     Route: 042
     Dates: start: 20130627, end: 20130701
  2. OGASTORO [Suspect]
     Dosage: 15 MG, 1X/DAY
     Route: 048
     Dates: start: 20130627
  3. CYTARABINE EG [Suspect]
     Indication: ACUTE MYELOID LEUKAEMIA
     Dosage: 1650 MG, 2X IN 1 HOUR DAY 1 TO DAY 3
     Route: 042
     Dates: start: 20130627, end: 20130629
  4. VITAMIN K1 ^ROCHE^ [Suspect]
     Dosage: 10 MG/ML, 1X/DAY
     Dates: start: 20130627
  5. PIPERACILLIN TAZOBACTAM [Suspect]
     Dosage: 4 G, 3X/DAY
     Route: 042
     Dates: start: 20130627
  6. PARACETAMOL [Suspect]
     Dosage: 500 MG, 6 DF PER DAY
     Route: 042
     Dates: start: 20130627
  7. ONDANSETRON [Suspect]
     Dosage: 2 DF, 1X/DAY
     Route: 042
     Dates: start: 20130627
  8. HEPARIN [Suspect]
     Dosage: 6000 IU, 1X/DAY
     Route: 042
     Dates: start: 20130627
  9. PRIMPERAN [Suspect]
     Dosage: 1 DF, 3X/DAY
     Route: 042
     Dates: start: 20130627
  10. ACUPAN [Suspect]
     Dosage: 1 DF, 6X/DAY
     Route: 042
     Dates: start: 20130627
  11. BACTRIM FORTE [Suspect]
     Dosage: 1 DF, 3X/DAY
     Route: 048
     Dates: start: 20130627
  12. VALACICLOVIR [Suspect]
     Dosage: 500 MG, 1X/DAY
     Route: 048
     Dates: start: 20130627

REACTIONS (1)
  - Pulmonary alveolar haemorrhage [Recovered/Resolved]
